FAERS Safety Report 21897967 (Version 3)
Quarter: 2023Q1

REPORT INFORMATION
  Report Type: Spontaneous
  Country: US (occurrence: US)
  Receive Date: 20230123
  Receipt Date: 20230203
  Transmission Date: 20230418
  Serious: No
  Sender: FDA-Public Use
  Company Number: US-SANOFI-01454124

PATIENT
  Age: 68 Year
  Sex: Female

DRUGS (1)
  1. DUPIXENT [Suspect]
     Active Substance: DUPILUMAB
     Indication: Asthma
     Dosage: UNK

REACTIONS (10)
  - Dry mouth [Unknown]
  - Chest discomfort [Unknown]
  - Dyspnoea [Unknown]
  - Oral pruritus [Unknown]
  - Swelling face [Unknown]
  - Dry skin [Unknown]
  - Eye swelling [Unknown]
  - Pruritus [Unknown]
  - Eye pruritus [Unknown]
  - Rash erythematous [Unknown]
